FAERS Safety Report 20259296 (Version 2)
Quarter: 2022Q1

REPORT INFORMATION
  Report Type: Report from Study
  Country: US (occurrence: US)
  Receive Date: 20211230
  Receipt Date: 20220119
  Transmission Date: 20220423
  Serious: Yes (Death, Other)
  Sender: FDA-Public Use
  Company Number: US-GILEAD-2021-0563542

PATIENT
  Age: 69 Year
  Sex: Male
  Weight: 78.6 kg

DRUGS (23)
  1. REMDESIVIR [Suspect]
     Active Substance: REMDESIVIR
     Indication: COVID-19
     Dosage: 100 MG, QD
     Route: 042
     Dates: start: 20211204, end: 20211207
  2. CYCLOSPORINE [Suspect]
     Active Substance: CYCLOSPORINE
     Indication: COVID-19
     Dosage: 200 MG, QD
     Route: 048
     Dates: start: 20211207, end: 20211207
  3. NEXTERONE [Concomitant]
     Active Substance: AMIODARONE HYDROCHLORIDE
     Indication: COVID-19
     Dosage: UNK
     Dates: start: 20211216, end: 20211216
  4. PROVENTIL [Concomitant]
     Active Substance: ALBUTEROL
     Dosage: UNK
     Dates: start: 20211204, end: 20211216
  5. BARICITINIB [Concomitant]
     Active Substance: BARICITINIB
     Indication: COVID-19
     Dosage: UNK
     Dates: start: 20211206, end: 20211216
  6. READYPREP CHG [Concomitant]
     Active Substance: CHLORHEXIDINE GLUCONATE
     Dosage: UNK
     Dates: start: 20211214, end: 20211216
  7. CISATRACURIUM [Concomitant]
     Active Substance: CISATRACURIUM
     Indication: COVID-19
     Dosage: UNK
     Dates: start: 20211212, end: 20211216
  8. SUBLIMAZE [Concomitant]
     Active Substance: FENTANYL CITRATE
     Indication: Pain
     Dosage: UNK
     Dates: start: 20211212, end: 20211216
  9. HEPARIN SODIUM, PORCINE [Concomitant]
     Active Substance: HEPARIN SODIUM
     Indication: Peripheral ischaemia
     Dosage: UNK
     Dates: start: 20211210, end: 20211216
  10. MYCAMINE [Concomitant]
     Active Substance: MICAFUNGIN SODIUM
     Dosage: UNK
     Dates: start: 20211215, end: 20211216
  11. MIDAZOLAM [Concomitant]
     Active Substance: MIDAZOLAM
     Indication: Sedative therapy
     Dosage: UNK
     Dates: start: 20211213, end: 20211216
  12. NOREPINEPHRINE [Concomitant]
     Active Substance: NOREPINEPHRINE
     Indication: COVID-19
     Dosage: UNK
     Dates: start: 20211210, end: 20211216
  13. OMEPRAZOLE [Concomitant]
     Active Substance: OMEPRAZOLE
     Indication: Gastrooesophageal reflux disease
     Dosage: UNK
     Dates: start: 20211204, end: 20211216
  14. PHENYLEPHRINE [Concomitant]
     Active Substance: PHENYLEPHRINE HYDROCHLORIDE
     Indication: Nasal decongestion therapy
     Dosage: UNK
     Dates: start: 20211204, end: 20211216
  15. MIRALAX [Concomitant]
     Active Substance: POLYETHYLENE GLYCOL 3350
     Indication: Constipation
     Dosage: UNK
     Dates: start: 20211205, end: 20211216
  16. DIPRIVAN [Concomitant]
     Active Substance: PROPOFOL
     Dosage: UNK
     Dates: start: 20211210, end: 20211216
  17. VANCOCIN [Concomitant]
     Active Substance: VANCOMYCIN HYDROCHLORIDE
     Indication: Sepsis
     Dosage: UNK
     Dates: start: 20211213, end: 20211216
  18. VASOPRESSIN [Concomitant]
     Active Substance: VASOPRESSIN
  19. ZOSYN [Concomitant]
     Active Substance: PIPERACILLIN SODIUM\TAZOBACTAM SODIUM
     Indication: Pneumonia
     Dosage: UNK
     Dates: start: 20211213, end: 20211216
  20. FENTANYL [Concomitant]
     Active Substance: FENTANYL
     Dosage: UNK
     Dates: start: 20211212, end: 20211216
  21. HUMULIN R [Concomitant]
     Active Substance: INSULIN HUMAN
     Dosage: UNK
     Dates: start: 20211208, end: 20211216
  22. DEXAMETHASONE [Concomitant]
     Active Substance: DEXAMETHASONE
     Dosage: LESS THAN 8 MG
     Route: 042
     Dates: start: 202112, end: 202112
  23. NITRIC OXIDE [Concomitant]
     Active Substance: NITRIC OXIDE
     Dosage: UNK
     Dates: start: 202112

REACTIONS (1)
  - Sepsis [Fatal]

NARRATIVE: CASE EVENT DATE: 20211216
